FAERS Safety Report 9084396 (Version 1)
Quarter: 2013Q1

REPORT INFORMATION
  Report Type: Spontaneous
  Country: NL (occurrence: NL)
  Receive Date: 20130131
  Receipt Date: 20130131
  Transmission Date: 20140127
  Serious: Yes (Other)
  Sender: FDA-Public Use
  Company Number: NL-TEVA-382087ISR

PATIENT
  Age: 57 Year
  Sex: Female

DRUGS (2)
  1. PANTOPRAZOL TABLET MSR 20MG [Suspect]
     Indication: PROPHYLAXIS AGAINST GASTROINTESTINAL ULCER
     Dosage: 20 MILLIGRAM DAILY;
     Route: 048
     Dates: start: 20121220, end: 20121222
  2. IBUPROFEN TABLET 600MG [Suspect]
     Dosage: 1200 MILLIGRAM DAILY;
     Route: 048
     Dates: start: 20121220, end: 20121222

REACTIONS (1)
  - Vaginal haemorrhage [Recovering/Resolving]
